FAERS Safety Report 10772415 (Version 1)
Quarter: 2015Q1

REPORT INFORMATION
  Report Type: Spontaneous
  Country: US (occurrence: US)
  Receive Date: 20150207
  Receipt Date: 20150207
  Transmission Date: 20150721
  Serious: Yes (Other)
  Sender: FDA-Public Use
  Company Number: US-ACCORD-028505

PATIENT
  Age: 12 Year
  Sex: Female
  Weight: 54 kg

DRUGS (6)
  1. REMIFENTANIL/REMIFENTANIL HYDROCHLORIDE [Concomitant]
     Dosage: 0.05-0.15 MCG/KG/MIN
  2. PROPOFOL. [Concomitant]
     Active Substance: PROPOFOL
     Dosage: 125-200 MCG/KG/MIN
     Route: 042
  3. TOPIRAMATE. [Concomitant]
     Active Substance: TOPIRAMATE
  4. LEVETIRACETAM. [Suspect]
     Active Substance: LEVETIRACETAM
     Indication: PROPHYLAXIS
     Dosage: 10 MG/KG OVER 30 MINUTES VIA PERIPHERAL IV CATHETER
  5. MIDAZOLAM [Concomitant]
     Active Substance: MIDAZOLAM\MIDAZOLAM HYDROCHLORIDE
     Indication: ANXIOLYTIC THERAPY
     Route: 048
  6. CLORAZEPIC ACID [Concomitant]
     Active Substance: CLORAZEPIC ACID

REACTIONS (1)
  - Neurological examination abnormal [Recovered/Resolved]
